FAERS Safety Report 15537951 (Version 2)
Quarter: 2020Q2

REPORT INFORMATION
  Report Type: Report from Study
  Country: US (occurrence: US)
  Receive Date: 20181022
  Receipt Date: 20200618
  Transmission Date: 20200713
  Serious: No
  Sender: FDA-Public Use
  Company Number: US-SA-2018SA289656

PATIENT

DRUGS (2)
  1. TERIFLUNOMIDE. [Suspect]
     Active Substance: TERIFLUNOMIDE
     Indication: MULTIPLE SCLEROSIS
     Dosage: 14 MG, QD
     Route: 048
  2. TERIFLUNOMIDE. [Suspect]
     Active Substance: TERIFLUNOMIDE
     Dosage: 14 MG, QD
     Route: 048
     Dates: start: 20150622

REACTIONS (15)
  - Arthralgia [Unknown]
  - Diarrhoea [Unknown]
  - Pain [Unknown]
  - Joint dislocation [Unknown]
  - Spinal operation [Unknown]
  - Gait disturbance [Unknown]
  - Exposure during pregnancy [Unknown]
  - Hypertension [Recovering/Resolving]
  - Depression [Unknown]
  - Constipation [Unknown]
  - Memory impairment [Not Recovered/Not Resolved]
  - Osteoarthritis [Unknown]
  - Malaise [Unknown]
  - Hysterectomy [Unknown]
  - Peripheral swelling [Unknown]
